FAERS Safety Report 5688172-2 (Version None)
Quarter: 2008Q1

REPORT INFORMATION
  Report Type: 
  Country: None (occurrence: None)
  Receive Date: 20080327
  Receipt Date: 20080312
  Transmission Date: 20080703
  Serious: Yes (Other)
  Sender: FDA-Public Use
  Company Number: GXKR2008CH02790

PATIENT
  Age: 24 Year
  Sex: Male

DRUGS (2)
  1. PREDNISONE [Suspect]
     Indication: AUTOIMMUNE DISORDER
     Dosage: 10 MG, ORAL
     Route: 048
  2. CYCLOSPORINE [Suspect]
     Indication: AUTOIMMUNE DISORDER
     Dosage: 200 MG, ORAL
     Route: 048

REACTIONS (4)
  - CHORIORETINAL SCAR [None]
  - EYE INFECTION TOXOPLASMAL [None]
  - GRAND MAL CONVULSION [None]
  - VISUAL ACUITY REDUCED [None]
